FAERS Safety Report 19258941 (Version 1)
Quarter: 2021Q2

REPORT INFORMATION
  Report Type: Other
  Country: US (occurrence: US)
  Receive Date: 20210514
  Receipt Date: 20210514
  Transmission Date: 20210717
  Serious: Yes (Other)
  Sender: FDA-Public Use
  Company Number: US-ROCHE-2826897

PATIENT

DRUGS (13)
  1. TOCILIZUMAB. [Concomitant]
     Active Substance: TOCILIZUMAB
     Route: 042
  2. CISPLATIN. [Suspect]
     Active Substance: CISPLATIN
     Indication: DIFFUSE LARGE B-CELL LYMPHOMA
     Route: 065
  3. DEXAMETHASONE. [Suspect]
     Active Substance: DEXAMETHASONE
     Indication: DIFFUSE LARGE B-CELL LYMPHOMA
     Route: 065
  4. IFOSFAMIDE. [Suspect]
     Active Substance: IFOSFAMIDE
     Indication: DIFFUSE LARGE B-CELL LYMPHOMA
     Route: 065
  5. ETOPOSIDE. [Suspect]
     Active Substance: ETOPOSIDE
     Indication: DIFFUSE LARGE B-CELL LYMPHOMA
     Route: 065
  6. CYCLOPHOSPHAMIDE. [Suspect]
     Active Substance: CYCLOPHOSPHAMIDE
     Indication: DIFFUSE LARGE B-CELL LYMPHOMA
     Route: 065
  7. CYTARABINE. [Suspect]
     Active Substance: CYTARABINE
     Indication: DIFFUSE LARGE B-CELL LYMPHOMA
     Route: 065
  8. THIOTEPA. [Suspect]
     Active Substance: THIOTEPA
     Indication: DIFFUSE LARGE B-CELL LYMPHOMA
     Route: 065
  9. CARBOPLATIN. [Suspect]
     Active Substance: CARBOPLATIN
     Indication: DIFFUSE LARGE B-CELL LYMPHOMA
     Route: 065
  10. FILGRASTIM [Suspect]
     Active Substance: FILGRASTIM
     Indication: DIFFUSE LARGE B-CELL LYMPHOMA
     Dosage: 5 MCG/KG/DAY
     Route: 065
  11. FLUDARABINE [Concomitant]
     Active Substance: FLUDARABINE PHOSPHATE
  12. RITUXIMAB. [Suspect]
     Active Substance: RITUXIMAB
     Indication: DIFFUSE LARGE B-CELL LYMPHOMA
     Route: 065
  13. GEMCITABINE;OXALIPLATIN [Suspect]
     Active Substance: GEMCITABINE HYDROCHLORIDE\OXALIPLATIN
     Indication: DIFFUSE LARGE B-CELL LYMPHOMA
     Route: 065

REACTIONS (8)
  - Enterococcal bacteraemia [Unknown]
  - Herpes simplex [Unknown]
  - Cytokine release syndrome [Unknown]
  - Infection [Unknown]
  - Pneumonia [Unknown]
  - Clostridium difficile colitis [Unknown]
  - Febrile neutropenia [Unknown]
  - Immune effector cell-associated neurotoxicity syndrome [Unknown]
